FAERS Safety Report 7409501-5 (Version None)
Quarter: 2011Q2

REPORT INFORMATION
  Report Type: 
  Country: None (occurrence: None)
  Receive Date: 20110412
  Receipt Date: 20110329
  Transmission Date: 20111010
  Serious: Yes (Hospitalization)
  Sender: FDA-Public Use
  Company Number: US-CELGENEUS-163-22393-11033468

PATIENT
  Sex: Female

DRUGS (1)
  1. ISTODAX [Suspect]
     Route: 065

REACTIONS (1)
  - THROMBOSIS [None]
